FAERS Safety Report 4864765-7 (Version None)
Quarter: 2005Q4

REPORT INFORMATION
  Report Type: 
  Country: None (occurrence: None)
  Receive Date: 20051222
  Receipt Date: 20051005
  Transmission Date: 20060501
  Serious: Yes (Death)
  Sender: FDA-Public Use
  Company Number: US-MERCK-0510USA04365

PATIENT
  Age: 63 Year
  Sex: Male
  Weight: 86 kg

DRUGS (5)
  1. VIOXX [Suspect]
     Indication: FIBROMYALGIA
     Route: 048
     Dates: start: 20010101, end: 20031103
  2. VIOXX [Suspect]
     Route: 048
     Dates: start: 20010101, end: 20031103
  3. VIOXX [Suspect]
     Indication: ARTHRALGIA
     Route: 048
     Dates: start: 20010101, end: 20031103
  4. VIOXX [Suspect]
     Route: 048
     Dates: start: 20010101, end: 20031103
  5. HYZAAR [Concomitant]
     Route: 048

REACTIONS (3)
  - ARTERIOSCLEROSIS CORONARY ARTERY [None]
  - HYPERTENSIVE HEART DISEASE [None]
  - MYOCARDIAL INFARCTION [None]
